FAERS Safety Report 6936044-5 (Version None)
Quarter: 2010Q3

REPORT INFORMATION
  Report Type: 
  Country: None (occurrence: None)
  Receive Date: 20100823
  Receipt Date: 20100614
  Transmission Date: 20110219
  Serious: Yes (Life-Threatening)
  Sender: FDA-Public Use
  Company Number: US-KINGPHARMUSA00001-K201000731

PATIENT
  Age: 17 Year
  Sex: Female
  Weight: 56.3 kg

DRUGS (5)
  1. SEPTRA [Suspect]
     Indication: URINARY TRACT INFECTION
     Dosage: 800/160 MG, BID
     Route: 048
     Dates: start: 20100510, end: 20100520
  2. SEPTRA [Suspect]
     Dosage: 1 DF, BID FRIDAY/SATURDAY/ SUNDAY
     Route: 048
     Dates: start: 20100521
  3. ANTINEOPLASTIC AGENTS [Suspect]
     Indication: NON-SMALL CELL LUNG CANCER
     Dosage: 165 MG/M2, BID
     Route: 048
     Dates: start: 20100510, end: 20100521
  4. ANTINEOPLASTIC AGENTS [Suspect]
     Dosage: UNK
     Route: 048
  5. CEFEPIME [Concomitant]

REACTIONS (1)
  - NEUTROPENIA [None]
